FAERS Safety Report 5318311-4 (Version None)
Quarter: 2007Q2

REPORT INFORMATION
  Report Type: 
  Country: None (occurrence: None)
  Receive Date: 20070507
  Receipt Date: 20070425
  Transmission Date: 20071010
  Serious: Yes (Other)
  Sender: FDA-Public Use
  Company Number: JP-SANOFI-SYNTHELABO-A01200704581

PATIENT
  Age: 71 Year
  Sex: Male
  Weight: 61 kg

DRUGS (13)
  1. NOVORAPID [Concomitant]
     Route: 058
  2. MAGMITT [Concomitant]
     Route: 048
  3. LENDORMIN [Concomitant]
     Route: 048
  4. FLIVAS [Concomitant]
     Route: 048
  5. DIOVAN [Concomitant]
     Route: 048
  6. DEXAMETHASONE SODIUM PHOSPHATE [Concomitant]
     Indication: PREMEDICATION
     Route: 041
     Dates: start: 20070110, end: 20070110
  7. CALCICOL [Concomitant]
     Indication: PREMEDICATION
     Route: 041
     Dates: start: 20070110, end: 20070110
  8. KYTRIL [Concomitant]
     Indication: PREMEDICATION
     Route: 041
     Dates: start: 20070110, end: 20070110
  9. ISOVORIN [Concomitant]
     Route: 041
     Dates: start: 20070110, end: 20070110
  10. FLUOROURACIL [Suspect]
     Indication: LARGE INTESTINE CARCINOMA
     Dosage: 400MG/BODY=258.1MG/M2 IN BOLUS THEN 600MG/BODY=387.1MG/M2 AS CONTINUOUS INFUSION ON DAYS 1 AND 2
     Route: 041
     Dates: start: 20070110, end: 20070110
  11. DIA-KENCHU-TO [Concomitant]
     Route: 048
  12. MAGNESOL [Concomitant]
     Indication: PREMEDICATION
     Route: 041
     Dates: start: 20070110, end: 20070110
  13. OXALIPLATIN [Suspect]
     Indication: LARGE INTESTINE CARCINOMA
     Route: 041
     Dates: start: 20070110, end: 20070110

REACTIONS (1)
  - SUBDURAL HAEMATOMA [None]
